FAERS Safety Report 8591597-9 (Version None)
Quarter: 2012Q3

REPORT INFORMATION
  Report Type: 
  Country: None (occurrence: None)
  Receive Date: 20120814
  Receipt Date: 20120807
  Transmission Date: 20120928
  Serious: No
  Sender: FDA-Public Use
  Company Number: US-PFIZER INC-2012193516

PATIENT
  Age: 54 Year
  Sex: Male

DRUGS (1)
  1. NITROSTAT [Suspect]
     Indication: HERNIA
     Dosage: 2-3 TABLET TOGETHER, UNK
     Route: 048

REACTIONS (2)
  - POOR QUALITY DRUG ADMINISTERED [None]
  - OFF LABEL USE [None]
